FAERS Safety Report 19727597 (Version 1)
Quarter: 2021Q3

REPORT INFORMATION
  Report Type: Spontaneous
  Country: US (occurrence: US)
  Receive Date: 20210819
  Receipt Date: 20210819
  Transmission Date: 20211014
  Serious: No
  Sender: FDA-Public Use
  Company Number: US-SA-2021SA274310

PATIENT
  Sex: Female

DRUGS (23)
  1. FLEXERIL [CEFIXIME] [Concomitant]
     Active Substance: CEFIXIME
  2. OMEPRAZOLE. [Concomitant]
     Active Substance: OMEPRAZOLE
  3. IMITREX [Concomitant]
     Active Substance: SUMATRIPTAN SUCCINATE
  4. ZOFRAN [Concomitant]
     Active Substance: ONDANSETRON HYDROCHLORIDE
  5. KETOCONAZOLE. [Concomitant]
     Active Substance: KETOCONAZOLE
  6. CALCIUM [Concomitant]
     Active Substance: CALCIUM
  7. METHOTREXATE. [Suspect]
     Active Substance: METHOTREXATE
  8. LIPITOR [Concomitant]
     Active Substance: ATORVASTATIN CALCIUM
  9. HYDROCORTISONE. [Concomitant]
     Active Substance: HYDROCORTISONE
  10. FLUOXETINE HCL [Concomitant]
     Active Substance: FLUOXETINE HYDROCHLORIDE
  11. ROSUVASTIN [Concomitant]
     Active Substance: ROSUVASTATIN
  12. FOLIC ACID. [Concomitant]
     Active Substance: FOLIC ACID
  13. PREDNISONE. [Concomitant]
     Active Substance: PREDNISONE
  14. AMBIEN [Concomitant]
     Active Substance: ZOLPIDEM TARTRATE
  15. TYLENOL [Concomitant]
     Active Substance: ACETAMINOPHEN
  16. VITAMIN D3 [Concomitant]
     Active Substance: CHOLECALCIFEROL
  17. KEVZARA [Suspect]
     Active Substance: SARILUMAB
     Indication: RHEUMATOID ARTHRITIS
     Dosage: 200 MG (FREQUENCY?INJECT 2)
     Route: 058
  18. LYRICA [Concomitant]
     Active Substance: PREGABALIN
  19. MELOXICAM. [Concomitant]
     Active Substance: MELOXICAM
  20. ALBUTEROL SULFATE. [Concomitant]
     Active Substance: ALBUTEROL SULFATE
  21. ALLOPURINOL. [Concomitant]
     Active Substance: ALLOPURINOL
  22. ADVIL [Concomitant]
     Active Substance: IBUPROFEN
  23. SULFASALAZINE. [Concomitant]
     Active Substance: SULFASALAZINE

REACTIONS (2)
  - Myalgia [Unknown]
  - Nausea [Unknown]
